FAERS Safety Report 15632257 (Version 1)
Quarter: 2018Q4

REPORT INFORMATION
  Report Type: Spontaneous
  Country: US (occurrence: US)
  Receive Date: 20181119
  Receipt Date: 20181119
  Transmission Date: 20190205
  Serious: Yes (Hospitalization, Other)
  Sender: FDA-Public Use
  Company Number: US-BAYER-2018-211789

PATIENT
  Age: 1 Day
  Sex: Male
  Weight: .9 kg

DRUGS (2)
  1. METHADONE [Concomitant]
     Active Substance: METHADONE HYDROCHLORIDE
     Route: 064
  2. PARACETAMOL [Suspect]
     Active Substance: ACETAMINOPHEN
     Dosage: UNK
     Route: 064

REACTIONS (5)
  - Pulmonary oedema [Recovered/Resolved]
  - Foetal exposure during pregnancy [Unknown]
  - Toxicity to various agents [Recovering/Resolving]
  - Premature baby [Unknown]
  - Acidosis [Recovering/Resolving]
